FAERS Safety Report 24758518 (Version 1)
Quarter: 2024Q4

REPORT INFORMATION
  Report Type: Spontaneous
  Country: US (occurrence: None)
  Receive Date: 20241219
  Receipt Date: 20241219
  Transmission Date: 20250114
  Serious: No
  Sender: Public
  Company Number: None

PATIENT
  Age: 74 Year
  Sex: Female

DRUGS (1)
  1. COSENTYX [Suspect]
     Active Substance: SECUKINUMAB
     Indication: Hidradenitis
     Dosage: OTHER FREQUENCY : ONCEAWEEKFOR5WKSASDIRECTED;?
     Route: 058
     Dates: start: 202410

REACTIONS (3)
  - Urinary tract infection [None]
  - Injection site pain [None]
  - Intentional dose omission [None]
